FAERS Safety Report 6832458-2 (Version None)
Quarter: 2010Q3

REPORT INFORMATION
  Report Type: 
  Country: None (occurrence: None)
  Receive Date: 20100712
  Receipt Date: 20070312
  Transmission Date: 20110219
  Serious: No
  Sender: FDA-Public Use
  Company Number: US-PFIZER INC-2007020102

PATIENT
  Sex: Female
  Weight: 61.23 kg

DRUGS (5)
  1. CHANTIX [Suspect]
     Indication: SMOKING CESSATION THERAPY
     Route: 048
     Dates: start: 20070201, end: 20070311
  2. CENTRUM SILVER [Concomitant]
  3. CARDIOVASCULAR SYSTEM DRUGS [Concomitant]
  4. ELAVIL [Concomitant]
  5. VITAMIN C [Concomitant]

REACTIONS (2)
  - NAUSEA [None]
  - VOMITING [None]
